FAERS Safety Report 8045724-2 (Version None)
Quarter: 2012Q1

REPORT INFORMATION
  Report Type: 
  Country: None (occurrence: None)
  Receive Date: 20120113
  Receipt Date: 20120105
  Transmission Date: 20120608
  Serious: Yes (Other)
  Sender: FDA-Public Use
  Company Number: PHEH2012US000475

PATIENT
  Age: 62 Year
  Sex: Female

DRUGS (7)
  1. GLUCOSAMINE W/CHONDROITIN /MSM [Concomitant]
  2. LIPITOR [Concomitant]
  3. ASPIRIN [Concomitant]
  4. VITAMIN D [Concomitant]
  5. OMEGA [Concomitant]
  6. COMBIPATCH [Suspect]
     Dosage: 0.05/0.14 MG, TWICE A MONTH
     Route: 062
  7. CALCIUM [Concomitant]

REACTIONS (2)
  - ROTATOR CUFF SYNDROME [None]
  - INCORRECT DOSE ADMINISTERED [None]
